FAERS Safety Report 4890882-1 (Version None)
Quarter: 2006Q1

REPORT INFORMATION
  Report Type: 
  Country: None (occurrence: None)
  Receive Date: 20060125
  Receipt Date: 20060113
  Transmission Date: 20060701
  Serious: Yes (Death, Other)
  Sender: FDA-Public Use
  Company Number: PHHO2006AR01027

PATIENT
  Age: 74 Year
  Sex: Female

DRUGS (1)
  1. ZELMAC / HTF 919A [Suspect]
     Indication: CONSTIPATION
     Route: 048
     Dates: start: 20051101

REACTIONS (3)
  - DEATH [None]
  - DIABETES MELLITUS [None]
  - URINARY TRACT INFECTION [None]
